FAERS Safety Report 9015398 (Version 2)
Quarter: 2013Q1

REPORT INFORMATION
  Report Type: Spontaneous
  Country: US (occurrence: US)
  Receive Date: 20130116
  Receipt Date: 20130329
  Transmission Date: 20140127
  Serious: Yes (Hospitalization, Other)
  Sender: FDA-Public Use
  Company Number: US-BRISTOL-MYERS SQUIBB COMPANY-17270463

PATIENT
  Age: 75 Year
  Sex: Male
  Weight: 95.24 kg

DRUGS (12)
  1. ORENCIA [Suspect]
     Indication: RHEUMATOID ARTHRITIS
     Dosage: MOST RECENT TREATMENT:15DEC12?INTER:15FEB12:REST:11MAY2012
     Route: 042
     Dates: start: 201110
  2. FISH OIL [Concomitant]
     Indication: HYPERLIPIDAEMIA
  3. FISH OIL [Concomitant]
     Indication: RHEUMATOID ARTHRITIS
  4. WELCHOL [Concomitant]
     Indication: HYPERLIPIDAEMIA
  5. ASPIRIN [Concomitant]
     Indication: CARDIAC DISORDER
  6. LANSOPRAZOLE [Concomitant]
  7. VITAMIN D [Concomitant]
     Indication: HYPOVITAMINOSIS
     Dosage: 1 DF:2000 UNITS
  8. FERROUS SULFATE [Concomitant]
     Indication: ANAEMIA
  9. METHYLPREDNISONE [Concomitant]
     Indication: INFLAMMATION
  10. FOLIC ACID [Concomitant]
  11. CHOLECALCIFEROL [Concomitant]
  12. PYRIDOXINE HCL [Concomitant]

REACTIONS (4)
  - Pyrexia [Unknown]
  - Wound infection [Recovered/Resolved]
  - Cyst [Recovered/Resolved]
  - Axonal neuropathy [Unknown]
